FAERS Safety Report 24530839 (Version 1)
Quarter: 2024Q4

REPORT INFORMATION
  Report Type: Spontaneous
  Country: GB (occurrence: GB)
  Receive Date: 20241021
  Receipt Date: 20241021
  Transmission Date: 20250115
  Serious: Yes (Other)
  Sender: SANDOZ
  Company Number: GB-MHRA-MED-202306261208320520-TCDJB

PATIENT
  Age: 53 Year
  Sex: Female
  Weight: 62 kg

DRUGS (7)
  1. CLARITHROMYCIN [Suspect]
     Active Substance: CLARITHROMYCIN
     Indication: Infected bite
     Dosage: 500 MG, BID (1000 MG)
     Route: 065
     Dates: start: 20230619, end: 20230624
  2. CALCIUM CARBONATE\CHOLECALCIFEROL [Concomitant]
     Active Substance: CALCIUM CARBONATE\CHOLECALCIFEROL
     Indication: Product used for unknown indication
     Dosage: ADVISED BY RHEUMATOLOGIST
     Route: 065
     Dates: start: 20090603
  3. FOLIC ACID [Concomitant]
     Active Substance: FOLIC ACID
     Indication: Product used for unknown indication
     Dosage: TO ACCOMPANY METHOTREXATE
     Route: 065
     Dates: start: 20090603
  4. LEVONORGESTREL [Concomitant]
     Active Substance: LEVONORGESTREL
     Indication: Product used for unknown indication
     Dosage: RENEWAL
     Route: 065
     Dates: start: 20191218
  5. METHOTREXATE [Concomitant]
     Active Substance: METHOTREXATE
     Indication: Sarcoidosis
     Route: 065
     Dates: start: 20090603
  6. ESTRADIOL [Concomitant]
     Active Substance: ESTRADIOL
     Indication: Menopausal symptoms
     Dosage: UNK
     Route: 065
     Dates: start: 20220420
  7. UTROGESTAN [Concomitant]
     Active Substance: PROGESTERONE
     Indication: Menopausal symptoms
     Route: 065
     Dates: start: 20220420

REACTIONS (2)
  - Mania [Recovering/Resolving]
  - Insomnia [Unknown]
